FAERS Safety Report 7522686-5 (Version None)
Quarter: 2011Q2

REPORT INFORMATION
  Report Type: 
  Country: None (occurrence: None)
  Receive Date: 20110603
  Receipt Date: 20110527
  Transmission Date: 20111010
  Serious: Yes (Other)
  Sender: FDA-Public Use
  Company Number: JP-BAYER-201013479BYL

PATIENT
  Age: 54 Year
  Sex: Male
  Weight: 59 kg

DRUGS (7)
  1. NEXAVAR [Suspect]
     Indication: RENAL CELL CARCINOMA
     Dosage: 800 MG (DAILY DOSE), , ORAL
     Route: 048
     Dates: start: 20090723, end: 20100527
  2. MAGNESIUM SULFATE [Concomitant]
     Dosage: 990 MG (DAILY DOSE), , ORAL
     Route: 048
     Dates: start: 20090408, end: 20110502
  3. CYTOTEC [Concomitant]
     Dosage: 600 MG (DAILY DOSE), , ORAL
     Route: 048
     Dates: start: 20090408, end: 20100530
  4. VOLTAREN-XR [Concomitant]
     Dosage: 75 MG (DAILY DOSE), , ORAL
     Route: 048
     Dates: start: 20090408
  5. OXYCONTIN [Concomitant]
     Dosage: 20 MG (DAILY DOSE), , ORAL
     Route: 048
     Dates: start: 20090408, end: 20110502
  6. MEDICON [Concomitant]
     Dosage: 0.45 G (DAILY DOSE), , ORAL
     Route: 048
     Dates: start: 20091105, end: 20091130
  7. FAMOTIDINE [Concomitant]
     Dosage: 40 MG (DAILY DOSE), , ORAL
     Route: 048
     Dates: start: 20090408, end: 20100530

REACTIONS (10)
  - GASTROINTESTINAL HAEMORRHAGE [None]
  - NASOPHARYNGITIS [None]
  - PEPTIC ULCER [None]
  - HYPERTENSION [None]
  - COUGH [None]
  - VOMITING [None]
  - PALMAR-PLANTAR ERYTHRODYSAESTHESIA SYNDROME [None]
  - ALOPECIA [None]
  - DIARRHOEA [None]
  - HAEMOGLOBIN DECREASED [None]
